FAERS Safety Report 7003549-0 (Version None)
Quarter: 2010Q3

REPORT INFORMATION
  Report Type: 
  Country: None (occurrence: None)
  Receive Date: 20100916
  Receipt Date: 20100901
  Transmission Date: 20110219
  Serious: Yes (Hospitalization)
  Sender: FDA-Public Use
  Company Number: 1000016178

PATIENT
  Age: 37 Year
  Sex: Female

DRUGS (11)
  1. ESCITALOPRAM OXALATE [Suspect]
     Indication: DEPRESSION
     Dosage: 20 MG (20 MG, 1 IN 1 D), ORAL
     Route: 048
     Dates: start: 20100101, end: 20100430
  2. PRAZINE (PROMAZINE) (150 MILLIGRAM, TABLETS) [Suspect]
     Indication: ANXIETY DISORDER
     Dosage: 150 MG (150 MG, 1 IN 1 D), ORAL
     Route: 048
     Dates: start: 20100317, end: 20100330
  3. ABILIFY [Suspect]
     Indication: DEPRESSION
     Dosage: 15 MG (15 MG, 1 IN 1 D)
     Dates: start: 20100101, end: 20100315
  4. ABILIFY [Suspect]
     Indication: DEPRESSION
     Dosage: 20 MG (20 MG, 1 IN 1 D), ORAL
     Route: 048
     Dates: start: 20100316, end: 20100421
  5. HALDOL [Suspect]
     Indication: DEPRESSION
     Dosage: 9 MG (3 MG, 1 IN 1 D); 9 MG (3 MG, 3 IN 1 D)
     Dates: start: 20100405, end: 20100423
  6. HALDOL [Suspect]
     Indication: DEPRESSION
     Dosage: 9 MG (3 MG, 1 IN 1 D); 9 MG (3 MG, 3 IN 1 D)
     Dates: start: 20100425, end: 20100428
  7. RISPERDAL [Suspect]
     Indication: DEPRESSION
     Dosage: 4 MG ( 2 MG, 2 IN 1 D), ORAL; 4 MG (2 MG, 2 IN 1 D), ORAL
     Route: 048
     Dates: start: 20100422, end: 20100423
  8. RISPERDAL [Suspect]
     Indication: DEPRESSION
     Dosage: 4 MG ( 2 MG, 2 IN 1 D), ORAL; 4 MG (2 MG, 2 IN 1 D), ORAL
     Route: 048
     Dates: start: 20100425, end: 20100428
  9. ZOLPIDEM TARTRATE [Concomitant]
  10. CLONAZEPAM [Concomitant]
  11. ENTUMIN (CLOTIAPINE) [Concomitant]

REACTIONS (9)
  - ANXIETY [None]
  - CONDITION AGGRAVATED [None]
  - DEPRESSION [None]
  - ELECTROCARDIOGRAM QT PROLONGED [None]
  - MOOD ALTERED [None]
  - PSYCHOTIC DISORDER [None]
  - SUICIDAL IDEATION [None]
  - TACHYCARDIA [None]
  - THINKING ABNORMAL [None]
